FAERS Safety Report 12889842 (Version 1)
Quarter: 2016Q4

REPORT INFORMATION
  Report Type: Spontaneous
  Country: US (occurrence: US)
  Receive Date: 20161027
  Receipt Date: 20161027
  Transmission Date: 20170207
  Serious: No
  Sender: FDA-Public Use
  Company Number: US-PERRIGO-16US017744

PATIENT
  Sex: Female

DRUGS (2)
  1. UNISOM SLEEPTABS [Suspect]
     Active Substance: DOXYLAMINE SUCCINATE
     Indication: INSOMNIA
     Dosage: UNKNOWN, UNKNOWN
     Route: 048
     Dates: start: 201606, end: 201606
  2. UNISOM SLEEPTABS [Suspect]
     Active Substance: DOXYLAMINE SUCCINATE
     Dosage: UNKNOWN, UNKNOWN
     Route: 048
     Dates: start: 201606

REACTIONS (4)
  - Drug ineffective [Unknown]
  - Palpitations [Unknown]
  - Anxiety [Unknown]
  - Feeling jittery [Unknown]

NARRATIVE: CASE EVENT DATE: 201606
